FAERS Safety Report 24181261 (Version 1)
Quarter: 2024Q3

REPORT INFORMATION
  Report Type: Spontaneous
  Country: US (occurrence: US)
  Receive Date: 20240807
  Receipt Date: 20240807
  Transmission Date: 20241016
  Serious: Yes (Hospitalization, Other)
  Sender: BRISTOL MYERS SQUIBB
  Company Number: US-BRISTOL-MYERS SQUIBB COMPANY-2024-123615

PATIENT
  Age: 88 Year
  Sex: Female
  Weight: 77.11 kg

DRUGS (18)
  1. POMALYST [Suspect]
     Active Substance: POMALIDOMIDE
     Indication: Plasma cell myeloma
     Dosage: FREQUENCY: TAKE 1 CAPSULE BY MOUTH DALLY FOR 21 DAYS ON AND 7 DAYS OFF
     Route: 048
     Dates: start: 20240614
  2. FLECAINIDE ACETATE [Concomitant]
     Active Substance: FLECAINIDE ACETATE
  3. METOPROLOL TARTRATE [Concomitant]
     Active Substance: METOPROLOL TARTRATE
  4. ONDANSETRON [Concomitant]
     Active Substance: ONDANSETRON
  5. ELIQUIS [Concomitant]
     Active Substance: APIXABAN
  6. PREDNISOLONE ACETATE [Concomitant]
     Active Substance: PREDNISOLONE ACETATE
  7. HYDROCHLOROTHIAZIDE\LOSARTAN [Concomitant]
     Active Substance: HYDROCHLOROTHIAZIDE\LOSARTAN
     Dosage: 100-25MG
  8. KLOR-CON M20 [Concomitant]
     Active Substance: POTASSIUM CHLORIDE
  9. ACYCLOVIR [Concomitant]
     Active Substance: ACYCLOVIR
  10. DEXAMETHASONE [Concomitant]
     Active Substance: DEXAMETHASONE
  11. SIMVASTATIN [Concomitant]
     Active Substance: SIMVASTATIN
  12. ALLOPURINOL [Concomitant]
     Active Substance: ALLOPURINOL
  13. DIPHENOXYLATE HYDROCHLORIDE [Concomitant]
     Active Substance: DIPHENOXYLATE HYDROCHLORIDE
     Dosage: 2.5-0.025MG
  14. DOXAZOSIN MESYLATE [Concomitant]
     Active Substance: DOXAZOSIN MESYLATE
  15. GABAPENTIN [Concomitant]
     Active Substance: GABAPENTIN
  16. METFORMIN HYDROCHLORIDE [Concomitant]
     Active Substance: METFORMIN HYDROCHLORIDE
  17. OXYCODONE/APAP [Concomitant]
     Active Substance: ACETAMINOPHEN\OXYCODONE HYDROCHLORIDE
     Dosage: 5/325 MG
  18. PROCHLORPERAZINE MALEATE [Concomitant]
     Active Substance: PROCHLORPERAZINE MALEATE

REACTIONS (3)
  - Urinary tract infection [Unknown]
  - Asthenia [Unknown]
  - Urinary retention [Unknown]

NARRATIVE: CASE EVENT DATE: 20240701
